FAERS Safety Report 16945134 (Version 1)
Quarter: 2019Q4

REPORT INFORMATION
  Report Type: Spontaneous
  Country: US (occurrence: US)
  Receive Date: 20191021
  Receipt Date: 20191021
  Transmission Date: 20200122
  Serious: Yes (Other)
  Sender: FDA-Public Use
  Company Number: None

PATIENT
  Age: 4 Year
  Sex: Female
  Weight: 18 kg

DRUGS (1)
  1. MIRALAX [Suspect]
     Active Substance: POLYETHYLENE GLYCOL 3350
     Indication: CONSTIPATION
     Dates: start: 20190707, end: 20190713

REACTIONS (5)
  - Nervousness [None]
  - Tic [None]
  - Fear [None]
  - Aggression [None]
  - Psychotic behaviour [None]

NARRATIVE: CASE EVENT DATE: 20190707
